FAERS Safety Report 11650898 (Version 2)
Quarter: 2016Q1

REPORT INFORMATION
  Report Type: Spontaneous
  Country: US (occurrence: US)
  Receive Date: 20151021
  Receipt Date: 20160211
  Transmission Date: 20160525
  Serious: No
  Sender: FDA-Public Use
  Company Number: US-TAKEDA-2015TUS014402

PATIENT
  Sex: Female

DRUGS (4)
  1. CONTRAVE [Suspect]
     Active Substance: BUPROPION HYDROCHLORIDE\NALTREXONE HYDROCHLORIDE
     Indication: OVERWEIGHT
     Dosage: 8MG/ 90MG, QD
     Route: 048
     Dates: start: 2015, end: 2015
  2. CONTRAVE [Suspect]
     Active Substance: BUPROPION HYDROCHLORIDE\NALTREXONE HYDROCHLORIDE
     Dosage: 8MG/ 90MG, TID
     Route: 048
     Dates: start: 2015, end: 2015
  3. CONTRAVE [Suspect]
     Active Substance: BUPROPION HYDROCHLORIDE\NALTREXONE HYDROCHLORIDE
     Dosage: 8MG/ 90MG, QID
     Route: 048
     Dates: start: 2015
  4. CONTRAVE [Suspect]
     Active Substance: BUPROPION HYDROCHLORIDE\NALTREXONE HYDROCHLORIDE
     Dosage: 8MG/ 90MG, BID
     Route: 048
     Dates: start: 2015, end: 2015

REACTIONS (1)
  - Drug ineffective [Unknown]
